FAERS Safety Report 12922797 (Version 1)
Quarter: 2016Q4

REPORT INFORMATION
  Report Type: Spontaneous
  Country: US (occurrence: US)
  Receive Date: 20161109
  Receipt Date: 20161109
  Transmission Date: 20170207
  Serious: Yes (Other)
  Sender: FDA-Public Use
  Company Number: US-BRISTOL-MYERS SQUIBB COMPANY-BMS-2016-087470

PATIENT
  Sex: Male

DRUGS (1)
  1. YERVOY [Suspect]
     Active Substance: IPILIMUMAB
     Indication: MALIGNANT MELANOMA
     Dosage: UNK UNK, Q3WK
     Route: 042
     Dates: start: 20160107

REACTIONS (14)
  - Malignant melanoma [Unknown]
  - Colonoscopy [Unknown]
  - Hordeolum [Recovered/Resolved]
  - Biopsy [Unknown]
  - Swelling [Unknown]
  - Decreased appetite [Recovering/Resolving]
  - Dry eye [Recovering/Resolving]
  - Drug ineffective [Unknown]
  - Infrequent bowel movements [Unknown]
  - Rash [Unknown]
  - Abdominal pain upper [Recovering/Resolving]
  - Ocular hyperaemia [Unknown]
  - Pruritus [Recovering/Resolving]
  - Diarrhoea [Unknown]
